FAERS Safety Report 24646347 (Version 2)
Quarter: 2025Q3

REPORT INFORMATION
  Report Type: Spontaneous
  Country: GB (occurrence: GB)
  Receive Date: 20241121
  Receipt Date: 20250803
  Transmission Date: 20251021
  Serious: Yes (Disabling)
  Sender: ALEXION PHARMACEUTICALS
  Company Number: GB-MHRA-EMIS-10681-f02af92d-9018-4b64-a62d-2c9a645a52d6

PATIENT
  Age: 88 Year
  Sex: Female
  Weight: 51 kg

DRUGS (10)
  1. DAPAGLIFLOZIN [Suspect]
     Active Substance: DAPAGLIFLOZIN
     Dosage: 1 DOSAGE FORM, QD
     Dates: start: 20230510, end: 20241018
  2. SODIUM CHLORIDE [Concomitant]
     Active Substance: SODIUM CHLORIDE
     Indication: Hyponatraemia
     Dosage: 1 DOSAGE FORM, Q12H
     Dates: start: 20240830, end: 20241002
  3. TRIMETHOPRIM [Concomitant]
     Active Substance: TRIMETHOPRIM
     Indication: Urinary tract infection
     Dosage: 1 DOSAGE FORM, Q12H
     Dates: start: 20241111
  4. TRIMETHOPRIM [Concomitant]
     Active Substance: TRIMETHOPRIM
     Dosage: 1 DOSAGE FORM, Q12H
     Dates: start: 20240906, end: 20241005
  5. TRIMETHOPRIM [Concomitant]
     Active Substance: TRIMETHOPRIM
     Dosage: 1 DOSAGE FORM, Q12H
     Dates: start: 20241002, end: 20241031
  6. MINERAL OIL\PARAFFIN [Concomitant]
     Active Substance: MINERAL OIL\PARAFFIN
     Route: 065
  7. CLOTRIMAZOLE [Concomitant]
     Active Substance: CLOTRIMAZOLE
     Dosage: FOR UP TO 2 WEEKS
     Dates: start: 20241002
  8. INTRAROSA [Concomitant]
     Active Substance: PRASTERONE
     Indication: Urinary tract infection
     Dosage: AT BEDTIME
     Dates: start: 20241004
  9. HYDROCORTISONE [Concomitant]
     Active Substance: HYDROCORTISONE
     Dosage: 1%/1%OVER AFFECTED AREA
     Dates: start: 20241014
  10. FLUCONAZOLE [Concomitant]
     Active Substance: FLUCONAZOLE

REACTIONS (3)
  - Nocturia [Recovering/Resolving]
  - Urinary tract infection [Recovering/Resolving]
  - Lower urinary tract symptoms [Recovering/Resolving]

NARRATIVE: CASE EVENT DATE: 20231220
